FAERS Safety Report 10005778 (Version 1)
Quarter: 2014Q1

REPORT INFORMATION
  Report Type: Spontaneous
  Country: US (occurrence: US)
  Receive Date: 20140313
  Receipt Date: 20140313
  Transmission Date: 20141002
  Serious: No
  Sender: FDA-Public Use
  Company Number: US-BIOGENIDEC-2014BI021463

PATIENT
  Sex: Female

DRUGS (12)
  1. TECFIDERA [Suspect]
     Indication: PRODUCT USED FOR UNKNOWN INDICATION
     Route: 048
  2. AMLODIPINE [Concomitant]
  3. LIPITOR [Concomitant]
  4. AVAPRO [Concomitant]
  5. IRBESARTAN [Concomitant]
  6. VALTREX [Concomitant]
  7. VITAMIN E [Concomitant]
  8. LEVOTHYROXIN [Concomitant]
  9. HCTZ/TRIAMT [Concomitant]
  10. BABY ASPIRIN [Concomitant]
  11. CALCIUM + D [Concomitant]
  12. VITAMIN C [Concomitant]

REACTIONS (1)
  - Herpes zoster [Unknown]
